FAERS Safety Report 5914931-4 (Version None)
Quarter: 2008Q4

REPORT INFORMATION
  Report Type: 
  Country: None (occurrence: None)
  Receive Date: 20081010
  Receipt Date: 20081002
  Transmission Date: 20090506
  Serious: Yes (Death, Hospitalization, Other)
  Sender: FDA-Public Use
  Company Number: IT-ELI_LILLY_AND_COMPANY-IT200801006576

PATIENT
  Sex: Female

DRUGS (5)
  1. ALIMTA [Suspect]
     Indication: MESOTHELIOMA MALIGNANT RECURRENT
     Dosage: 750 MG, PER CYCLE
     Route: 042
     Dates: start: 20071115
  2. ALIMTA [Suspect]
     Dosage: 750 MG, PER CYCLE
     Route: 042
     Dates: start: 20071212
  3. ALIMTA [Suspect]
     Dosage: 750 MG, PER CYCLE
     Route: 042
     Dates: start: 20080103
  4. FOLIC ACID [Concomitant]
     Indication: PREMEDICATION
     Dosage: UNK, UNKNOWN
     Route: 065
  5. VITAMIN B-12 [Concomitant]
     Indication: PREMEDICATION
     Dosage: UNK, UNKNOWN
     Route: 065

REACTIONS (6)
  - BONE MARROW FAILURE [None]
  - CATHETER SEPSIS [None]
  - CIRCULATORY COLLAPSE [None]
  - GENERAL PHYSICAL HEALTH DETERIORATION [None]
  - HAEMATOTOXICITY [None]
  - SHOCK HAEMORRHAGIC [None]
